FAERS Safety Report 5591697-1 (Version None)
Quarter: 2008Q1

REPORT INFORMATION
  Report Type: 
  Country: None (occurrence: None)
  Receive Date: 20080115
  Receipt Date: 20080109
  Transmission Date: 20080703
  Serious: Yes (Other)
  Sender: FDA-Public Use
  Company Number: JP-MERCK-0801USA02221

PATIENT
  Age: 85 Year
  Sex: Female

DRUGS (1)
  1. PEPCID RPD [Suspect]
     Route: 048
     Dates: start: 20060719, end: 20070418

REACTIONS (2)
  - AGRANULOCYTOSIS [None]
  - APLASTIC ANAEMIA [None]
